FAERS Safety Report 21280768 (Version 2)
Quarter: 2022Q3

REPORT INFORMATION
  Report Type: Spontaneous
  Country: IN (occurrence: IN)
  Receive Date: 20220901
  Receipt Date: 20220902
  Transmission Date: 20221027
  Serious: Yes (Death)
  Sender: FDA-Public Use
  Company Number: IN-PFIZER INC-202101020877

PATIENT
  Age: 70 Year
  Sex: Male

DRUGS (10)
  1. DACOMITINIB [Suspect]
     Active Substance: DACOMITINIB
     Indication: Adenosquamous cell lung cancer
     Dosage: 30 MG, MONDAY TO THURSDAY FOR 2 MONTHS
     Route: 048
     Dates: start: 20210405
  2. DACOMITINIB [Suspect]
     Active Substance: DACOMITINIB
     Indication: EGFR gene mutation
  3. CRIZOTINIB [Suspect]
     Active Substance: CRIZOTINIB
     Indication: Adenosquamous cell lung cancer
     Dosage: 250 MG, MONDAY TO THURSDAY X 2MONTHS
     Route: 048
  4. CRIZOTINIB [Suspect]
     Active Substance: CRIZOTINIB
     Indication: EGFR gene mutation
  5. FLECAINIDE [Concomitant]
     Active Substance: FLECAINIDE
     Dosage: ,  100 MG, 2X/DAY AFTER FOOD
  6. MET XL [Concomitant]
     Dosage: 25 MG, 1X/DAY, AFTER FOOD
  7. NEUROBION FORTE 5000 [Concomitant]
     Dosage: UNK, 1X/DAY
  8. SHELCAL CT [Concomitant]
     Dosage: 500 MG, 1X/DAY
  9. HYDROCORTISONE SODIUM SUCCINATE [Concomitant]
     Active Substance: HYDROCORTISONE SODIUM SUCCINATE
     Dosage: 100 MG
     Route: 042
  10. ZOLEDRONIC ACID [Concomitant]
     Active Substance: ZOLEDRONIC ACID
     Dosage: 4 MG
     Route: 042

REACTIONS (2)
  - Death [Fatal]
  - Off label use [Unknown]
